FAERS Safety Report 14146486 (Version 4)
Quarter: 2018Q4

REPORT INFORMATION
  Report Type: Report from Study
  Country: US (occurrence: US)
  Receive Date: 20171031
  Receipt Date: 20181224
  Transmission Date: 20190204
  Serious: Yes (Other)
  Sender: FDA-Public Use
  Company Number: PHHY2016US143493

PATIENT
  Age: 29 Year
  Sex: Female

DRUGS (1)
  1. GILENYA [Suspect]
     Active Substance: FINGOLIMOD HYDROCHLORIDE
     Indication: MULTIPLE SCLEROSIS
     Dosage: UNK, QD
     Route: 048

REACTIONS (9)
  - Contusion [Recovered/Resolved]
  - Lymphocyte count decreased [Unknown]
  - Gamma-glutamyltransferase increased [Unknown]
  - White blood cell count decreased [Unknown]
  - Paraesthesia [Unknown]
  - Fatigue [Unknown]
  - Muscular weakness [Unknown]
  - Stress [Unknown]
  - Uhthoff^s phenomenon [Unknown]

NARRATIVE: CASE EVENT DATE: 20160615
